FAERS Safety Report 6175797-3 (Version None)
Quarter: 2009Q2

REPORT INFORMATION
  Report Type: 
  Country: None (occurrence: None)
  Receive Date: 20090501
  Receipt Date: 20080430
  Transmission Date: 20091009
  Serious: Yes (Hospitalization)
  Sender: FDA-Public Use
  Company Number: FR-ALEXION-A200700013

PATIENT
  Sex: Female
  Weight: 45 kg

DRUGS (15)
  1. SOLIRIS [Suspect]
     Indication: PAROXYSMAL NOCTURNAL HAEMOGLOBINURIA
     Dosage: UNK, SINGLE
     Route: 042
     Dates: start: 20070501, end: 20070501
  2. SOLIRIS [Suspect]
     Dosage: 600 MG, SINGLE
     Route: 042
     Dates: start: 20070525, end: 20070525
  3. SOLIRIS [Suspect]
     Dosage: 600 MG, SINGLE
     Route: 042
     Dates: start: 20070601, end: 20070601
  4. SOLIRIS [Suspect]
     Dosage: 600 MG, SINGLE
     Route: 042
     Dates: start: 20070608, end: 20070608
  5. SOLIRIS [Suspect]
     Dosage: 600 MG, SINGLE
     Route: 042
     Dates: start: 20070615, end: 20070615
  6. SOLIRIS [Suspect]
     Dosage: 900 MG, SINGLE
     Route: 042
     Dates: start: 20070829, end: 20070829
  7. SOLIRIS [Suspect]
     Dosage: UNK, SINGLE
     Route: 042
     Dates: start: 20070903, end: 20070903
  8. CORTANCYL [Concomitant]
     Indication: PAROXYSMAL NOCTURNAL HAEMOGLOBINURIA
     Dosage: 5 MG, QD
     Route: 048
  9. PREVISCAN [Concomitant]
     Indication: PAROXYSMAL NOCTURNAL HAEMOGLOBINURIA
     Route: 048
  10. ORACILLINE [Concomitant]
     Indication: PAROXYSMAL NOCTURNAL HAEMOGLOBINURIA
     Route: 048
  11. ALDACTONE [Concomitant]
     Indication: HYPERTENSION
     Route: 048
  12. LASIX [Concomitant]
     Indication: HYPERTENSION
     Route: 048
  13. CALCIT D3 [Concomitant]
     Indication: MUSCLE SPASMS
     Route: 048
  14. FOSAMAX [Concomitant]
     Indication: MUSCLE SPASMS
     Route: 048
  15. FOSAMAX [Concomitant]
     Indication: MAJOR DEPRESSION

REACTIONS (3)
  - ASTHENIA [None]
  - HALLUCINATION [None]
  - HEADACHE [None]
